FAERS Safety Report 15255216 (Version 3)
Quarter: 2020Q4

REPORT INFORMATION
  Report Type: Spontaneous
  Country: US (occurrence: US)
  Receive Date: 20180808
  Receipt Date: 20201118
  Transmission Date: 20210113
  Serious: Yes (Other)
  Sender: FDA-Public Use
  Company Number: US-PFIZER INC-2018315407

PATIENT
  Age: 70 Year
  Sex: Female

DRUGS (8)
  1. DIAZEPAM. [Suspect]
     Active Substance: DIAZEPAM
     Dosage: 30 MG, DAILY
  2. DIAZEPAM. [Suspect]
     Active Substance: DIAZEPAM
     Dosage: 10 MG (ONE DOSE)
  3. ALPRAZOLAM. [Suspect]
     Active Substance: ALPRAZOLAM
     Dosage: 25 MG, 4X/DAY (EVERY 6 HOURS AS NEEDED)
  4. DIPYRIDAMOLE. [Concomitant]
     Active Substance: DIPYRIDAMOLE
     Dosage: 50 MG, 3X/DAY
     Route: 048
  5. DILTIAZEM. [Concomitant]
     Active Substance: DILTIAZEM
     Dosage: 30 MG, 3X/DAY
     Route: 048
  6. ALPRAZOLAM. [Suspect]
     Active Substance: ALPRAZOLAM
     Dosage: UNK
  7. TRIAZOLAM. [Suspect]
     Active Substance: TRIAZOLAM
     Dosage: TWO DOSES
  8. PROPRANOLOL [Concomitant]
     Active Substance: PROPRANOLOL HYDROCHLORIDE
     Dosage: 20 MG, 2X/DAY
     Route: 048

REACTIONS (2)
  - Drug dependence [Unknown]
  - Withdrawal syndrome [Recovering/Resolving]
